FAERS Safety Report 6792920-8 (Version None)
Quarter: 2010Q2

REPORT INFORMATION
  Report Type: 
  Country: None (occurrence: None)
  Receive Date: 20100624
  Receipt Date: 20081115
  Transmission Date: 20101027
  Serious: No
  Sender: FDA-Public Use
  Company Number: US-PFIZER INC-2008085467

PATIENT
  Sex: Female

DRUGS (4)
  1. XALATAN [Suspect]
     Dates: start: 20050101
  2. BENICAR [Concomitant]
  3. MIRTAZAPINE [Concomitant]
  4. SYNTHROID [Concomitant]

REACTIONS (3)
  - EYE PAIN [None]
  - INTRAOCULAR PRESSURE INCREASED [None]
  - UNEVALUABLE EVENT [None]
